FAERS Safety Report 8841187 (Version 1)
Quarter: 2012Q4

REPORT INFORMATION
  Report Type: 
  Country: US (occurrence: US)
  Receive Date: 20121015
  Receipt Date: 20121015
  Transmission Date: 20130627
  Serious: No
  Sender: FDA-Public Use
  Company Number: US-B.I. PHARMACEUTICALS,INC./RIDGEFIELD-2007-BP-23247BP

PATIENT
  Sex: Male

DRUGS (3)
  1. SPIRIVA HANDIHALER [Suspect]
  2. PRILOSEC [Concomitant]
  3. ALIGN [Concomitant]

REACTIONS (3)
  - Rash [Unknown]
  - Diarrhoea [Not Recovered/Not Resolved]
  - Dyspepsia [Not Recovered/Not Resolved]
